FAERS Safety Report 11855868 (Version 3)
Quarter: 2016Q2

REPORT INFORMATION
  Report Type: Spontaneous
  Country: US (occurrence: US)
  Receive Date: 20151221
  Receipt Date: 20160531
  Transmission Date: 20160815
  Serious: Yes (Other)
  Sender: FDA-Public Use
  Company Number: US-GLAXOSMITHKLINE-US2015GSK178666

PATIENT
  Sex: Female
  Weight: 42.5 kg

DRUGS (14)
  1. PERCOCET [Concomitant]
     Active Substance: ACETAMINOPHEN\OXYCODONE HYDROCHLORIDE
  2. GAS-X [Concomitant]
     Active Substance: DIMETHICONE
  3. VITAMIN B12 [Concomitant]
     Active Substance: CYANOCOBALAMIN
  4. NICOTINE UNKNOWN BRAND TRANSDERMAL PATCH [Suspect]
     Active Substance: NICOTINE
     Indication: SMOKING CESSATION THERAPY
  5. ALBUTEROL. [Suspect]
     Active Substance: ALBUTEROL
     Indication: PRODUCT USED FOR UNKNOWN INDICATION
  6. ZYRTEC-D ALLERGY AND CONGESTION [Concomitant]
     Active Substance: CETIRIZINE HYDROCHLORIDE\PSEUDOEPHEDRINE HYDROCHLORIDE
  7. POTASSIUM [Concomitant]
     Active Substance: POTASSIUM
  8. ZANTAC [Concomitant]
     Active Substance: RANITIDINE HYDROCHLORIDE
  9. NICOTINE UNKNOWN BRAND MEDICATED CHEWING-GUM [Suspect]
     Active Substance: NICOTINE
     Indication: SMOKING CESSATION THERAPY
  10. AMBIEN CR [Concomitant]
     Active Substance: ZOLPIDEM TARTRATE
  11. VITAMIN C [Concomitant]
     Active Substance: ASCORBIC ACID
  12. ADVAIR HFA [Suspect]
     Active Substance: FLUTICASONE PROPIONATE\SALMETEROL XINAFOATE
     Indication: PRODUCT USED FOR UNKNOWN INDICATION
     Dosage: 1 PUFF(S), BID
  13. XANAX [Concomitant]
     Active Substance: ALPRAZOLAM
  14. IRON [Concomitant]
     Active Substance: IRON

REACTIONS (7)
  - Poor quality sleep [Unknown]
  - Drug hypersensitivity [Recovered/Resolved]
  - Skin exfoliation [Recovered/Resolved]
  - Burn oral cavity [Unknown]
  - Application site reaction [Unknown]
  - Dysgeusia [Unknown]
  - Adverse drug reaction [Unknown]
